FAERS Safety Report 6915045-7 (Version None)
Quarter: 2010Q3

REPORT INFORMATION
  Report Type: 
  Country: None (occurrence: None)
  Receive Date: 20100809
  Receipt Date: 20100728
  Transmission Date: 20110219
  Serious: Yes (Hospitalization)
  Sender: FDA-Public Use
  Company Number: FR-WYE-H16621810

PATIENT
  Sex: Male

DRUGS (17)
  1. PANTOPRAZOLE SODIUM [Suspect]
     Indication: PROPHYLAXIS AGAINST GASTROINTESTINAL ULCER
     Route: 048
     Dates: start: 20070101
  2. VIRAMUNE [Suspect]
     Indication: HIV INFECTION
     Route: 048
     Dates: start: 20011101
  3. HYZAAR [Suspect]
     Indication: HYPERTENSION
     Route: 048
     Dates: start: 20070701
  4. COZAAR [Suspect]
     Indication: HYPERTENSION
     Route: 048
     Dates: start: 20030731, end: 20051221
  5. FORTZAAR [Suspect]
     Indication: HYPERTENSION
     Route: 048
     Dates: start: 20051222, end: 20070701
  6. KARDEGIC [Concomitant]
     Dosage: UNKNOWN
  7. ESCITALOPRAM OXALATE [Concomitant]
     Dosage: UNKNOWN
  8. ATHYMIL [Concomitant]
     Dosage: UNKNOWN
  9. ALPRAZOLAM [Concomitant]
  10. STILNOX [Concomitant]
  11. TERCIAN [Concomitant]
     Dosage: UNKNOWN
  12. CEBUTID [Concomitant]
     Dosage: 200 MG, FREQUENCY UNKNOWN
  13. TOPALGIC [Concomitant]
     Dosage: 250 MG, FREQUENCY UNKNOWN
  14. DOLIPRANE [Concomitant]
     Dosage: 1000 MG, FREQUENCY UNKNOWN
  15. LAMIVUDINE [Concomitant]
     Indication: HIV INFECTION
     Dosage: UNKNOWN
  16. ZIDOVUDINE [Concomitant]
     Indication: HIV INFECTION
  17. TRUVADA [Suspect]
     Indication: HIV INFECTION
     Route: 048
     Dates: start: 20090701, end: 20100427

REACTIONS (2)
  - OSTEOARTHRITIS [None]
  - PARALYSIS [None]
